FAERS Safety Report 21823907 (Version 2)
Quarter: 2023Q1

REPORT INFORMATION
  Report Type: Spontaneous
  Country: TR (occurrence: TR)
  Receive Date: 20230105
  Receipt Date: 20230131
  Transmission Date: 20230418
  Serious: Yes (Other)
  Sender: FDA-Public Use
  Company Number: TR-JNJFOC-20221257948

PATIENT
  Age: 58 Year
  Sex: Female

DRUGS (2)
  1. AMIVANTAMAB [Suspect]
     Active Substance: AMIVANTAMAB
     Indication: Non-small cell lung cancer
     Route: 042
  2. LAZERTINIB [Suspect]
     Active Substance: LAZERTINIB
     Indication: Non-small cell lung cancer
     Route: 048

REACTIONS (8)
  - Pinguecula [Unknown]
  - Conjunctival disorder [Unknown]
  - Pyogenic granuloma [Unknown]
  - Hirsutism [Unknown]
  - Actinic elastosis [Unknown]
  - Trichomegaly [Unknown]
  - Paronychia [Unknown]
  - Stomatitis [Unknown]
